FAERS Safety Report 6567350-4 (Version None)
Quarter: 2010Q1

REPORT INFORMATION
  Report Type: 
  Country: None (occurrence: None)
  Receive Date: 20100202
  Receipt Date: 20100125
  Transmission Date: 20100710
  Serious: Yes (Hospitalization)
  Sender: FDA-Public Use
  Company Number: PHHO2010BE01491

PATIENT
  Sex: Male
  Weight: 100 kg

DRUGS (1)
  1. CERTICAN [Suspect]
     Indication: HEART TRANSPLANT
     Dosage: UNK
     Route: 048
     Dates: start: 20090903

REACTIONS (4)
  - CELLULITIS [None]
  - ERYSIPELAS [None]
  - FLUID RETENTION [None]
  - PULMONARY EMBOLISM [None]
